FAERS Safety Report 11575945 (Version 1)
Quarter: 2015Q3

REPORT INFORMATION
  Report Type: Other
  Country: US (occurrence: US)
  Receive Date: 20150930
  Receipt Date: 20150930
  Transmission Date: 20151125
  Serious: Yes (Hospitalization)
  Sender: FDA-Public Use
  Company Number: US-CREALTA PHARMACEUTICALS-2015S1000053

PATIENT
  Age: 59 Year
  Sex: Male

DRUGS (1)
  1. PEGLOTICASE [Suspect]
     Active Substance: PEGLOTICASE
     Indication: GOUT
     Route: 042

REACTIONS (9)
  - Respiratory failure [Unknown]
  - Pneumonia [Unknown]
  - Cardiac failure congestive [Unknown]
  - Drug administration error [Recovered/Resolved]
  - Methaemoglobinaemia [Recovered/Resolved]
  - Delirium [Unknown]
  - Acute myocardial infarction [Unknown]
  - Pulmonary oedema [Unknown]
  - Renal failure [Unknown]
